FAERS Safety Report 6781211-7 (Version None)
Quarter: 2010Q2

REPORT INFORMATION
  Report Type: 
  Country: None (occurrence: None)
  Receive Date: 20100621
  Receipt Date: 20100609
  Transmission Date: 20101027
  Serious: Yes (Other)
  Sender: FDA-Public Use
  Company Number: JP-PFIZER INC-2010067811

PATIENT
  Age: 39 Year
  Sex: Female

DRUGS (2)
  1. ZITHROMAC SR [Suspect]
     Indication: ACUTE SINUSITIS
     Dosage: 2 G, SINGLE
     Route: 048
     Dates: start: 20100521, end: 20100521
  2. POLARAMINE [Suspect]
     Indication: RHINITIS ALLERGIC
     Dosage: 2 MG, UNK
     Route: 048
     Dates: start: 20100521, end: 20100521

REACTIONS (2)
  - DEPRESSED LEVEL OF CONSCIOUSNESS [None]
  - DIARRHOEA [None]
